FAERS Safety Report 5816584-2 (Version None)
Quarter: 2008Q3

REPORT INFORMATION
  Report Type: 
  Country: None (occurrence: None)
  Receive Date: 20080721
  Receipt Date: 20080707
  Transmission Date: 20090109
  Serious: Yes (Hospitalization, Other)
  Sender: FDA-Public Use
  Company Number: US-ROCHE-574989

PATIENT
  Age: 64 Year
  Sex: Female

DRUGS (8)
  1. ZENAPAX [Suspect]
     Dosage: IMMEDIATELY BEFORE TRANSPLANTATION
     Route: 042
  2. ZENAPAX [Suspect]
     Dosage: AT 2, 4, 6 AND 8 WEEKS POST-TRANSPLANT
     Route: 042
  3. SIROLIMUS [Suspect]
     Dosage: LOADING DOSE PRE-TRANSPLANT
     Route: 065
  4. SIROLIMUS [Suspect]
     Route: 065
  5. TACROLIMUS [Suspect]
     Dosage: IMMEDIATELY BEFORE TRANSPLANTATION
     Route: 065
  6. TACROLIMUS [Suspect]
     Dosage: MAINTAINED AT TARGET TROUGH LEVELS OF 3-6 NG/ML.
     Route: 065
  7. HEPARIN [Concomitant]
     Dosage: TOTAL DOSE 5000 UNITS PER TRANSPLANT.
  8. ENOXAPARIN SODIUM [Concomitant]
     Dosage: 1 WEEK POST-TRANSPLANT

REACTIONS (2)
  - BREAST CANCER [None]
  - OVARIAN CYST RUPTURED [None]
